FAERS Safety Report 4775210-4 (Version None)
Quarter: 2005Q3

REPORT INFORMATION
  Report Type: 
  Country: None (occurrence: None)
  Receive Date: 20050920
  Receipt Date: 20050907
  Transmission Date: 20060218
  Serious: Yes (Other)
  Sender: FDA-Public Use
  Company Number: 143129USA

PATIENT
  Age: 55 Year
  Sex: Female
  Weight: 57.6068 kg

DRUGS (4)
  1. COPAXONE [Suspect]
     Indication: MULTIPLE SCLEROSIS
     Dosage: 20 MILLIGRAM QD SUBCUTANEOUS
     Route: 058
     Dates: start: 20020201, end: 20050628
  2. FOSAMAX [Concomitant]
  3. OSCAL [Concomitant]
  4. CENTRUM [Concomitant]

REACTIONS (4)
  - CUTANEOUS SARCOIDOSIS [None]
  - INFECTION [None]
  - INFLAMMATORY BOWEL DISEASE [None]
  - VASCULITIS [None]
